FAERS Safety Report 8223329-8 (Version None)
Quarter: 2012Q1

REPORT INFORMATION
  Report Type: 
  Country: None (occurrence: None)
  Receive Date: 20120321
  Receipt Date: 20120315
  Transmission Date: 20120608
  Serious: Yes (Hospitalization)
  Sender: FDA-Public Use
  Company Number: US-SP-2012-00343

PATIENT
  Sex: Male

DRUGS (2)
  1. LISINOPRIL [Concomitant]
  2. THERACYS [Suspect]
     Indication: BLADDER CANCER
     Dosage: MAINTENANCE TREATMENT
     Route: 043

REACTIONS (6)
  - PNEUMOTHORAX [None]
  - INFLUENZA LIKE ILLNESS [None]
  - HYPONATRAEMIA [None]
  - BOVINE TUBERCULOSIS [None]
  - PYREXIA [None]
  - IRON DEFICIENCY ANAEMIA [None]
